FAERS Safety Report 8108742-1 (Version None)
Quarter: 2012Q1

REPORT INFORMATION
  Report Type: 
  Country: None (occurrence: None)
  Receive Date: 20120202
  Receipt Date: 20120127
  Transmission Date: 20120608
  Serious: Yes (Hospitalization)
  Sender: FDA-Public Use
  Company Number: PHHY2011GB10513

PATIENT
  Age: 45 Year
  Sex: Male

DRUGS (1)
  1. FLUOROURACIL [Suspect]
     Indication: RECTAL CANCER STAGE III
     Dosage: UNK

REACTIONS (15)
  - ABDOMINAL PAIN LOWER [None]
  - ABDOMINAL RIGIDITY [None]
  - NEUTROPENIA [None]
  - TACHYCARDIA [None]
  - ABDOMINAL TENDERNESS [None]
  - NEUTROPENIC SEPSIS [None]
  - ABDOMINAL PAIN UPPER [None]
  - PYREXIA [None]
  - COLITIS [None]
  - ABDOMINAL DISTENSION [None]
  - PSEUDOMEMBRANOUS COLITIS [None]
  - CHILLS [None]
  - MUCOSAL INFLAMMATION [None]
  - DIARRHOEA [None]
  - FLATULENCE [None]
